FAERS Safety Report 10201976 (Version 1)
Quarter: 2014Q2

REPORT INFORMATION
  Report Type: Spontaneous
  Country: US (occurrence: US)
  Receive Date: 20140528
  Receipt Date: 20140528
  Transmission Date: 20141212
  Serious: Yes (Other)
  Sender: FDA-Public Use
  Company Number: US-BRISTOL-MYERS SQUIBB COMPANY-20794038

PATIENT
  Age: 6 Decade
  Sex: Male

DRUGS (1)
  1. ABILIFY TABS [Suspect]
     Dosage: 5MG AND 10MG

REACTIONS (2)
  - Mania [Unknown]
  - Impulsive behaviour [Unknown]
